FAERS Safety Report 14509938 (Version 2)
Quarter: 2018Q1

REPORT INFORMATION
  Report Type: Report from Study
  Country: BE (occurrence: BE)
  Receive Date: 20180209
  Receipt Date: 20180222
  Transmission Date: 20180509
  Serious: Yes (Other)
  Sender: FDA-Public Use
  Company Number: BE-BEH-2018087541

PATIENT
  Sex: Female

DRUGS (2)
  1. HIZENTRA [Suspect]
     Active Substance: HUMAN IMMUNOGLOBULIN G
     Indication: PRODUCT USED FOR UNKNOWN INDICATION
     Dosage: 6 G (30 ML), QW
     Route: 058
     Dates: start: 20140728
  2. HIZENTRA [Suspect]
     Active Substance: HUMAN IMMUNOGLOBULIN G
     Dosage: 8 G (40 ML), QW
     Route: 058
     Dates: start: 20160229

REACTIONS (4)
  - Myalgia [Unknown]
  - Hyperthyroidism [Unknown]
  - Palpitations [Unknown]
  - Weight decreased [Unknown]
